FAERS Safety Report 7641831-4 (Version None)
Quarter: 2011Q3

REPORT INFORMATION
  Report Type: 
  Country: None (occurrence: None)
  Receive Date: 20110728
  Receipt Date: 20110721
  Transmission Date: 20111222
  Serious: Yes (Hospitalization)
  Sender: FDA-Public Use
  Company Number: US-JNJFOC-20110105164

PATIENT
  Sex: Male
  Weight: 83.92 kg

DRUGS (2)
  1. NUCYNTA [Suspect]
     Indication: BACK PAIN
     Route: 048
     Dates: start: 20101201, end: 20101201
  2. ATIVAN [Concomitant]
     Indication: TREMOR
     Route: 065
     Dates: start: 20101225

REACTIONS (2)
  - WITHDRAWAL SYNDROME [None]
  - HOSPITALISATION [None]
